FAERS Safety Report 5382583-0 (Version None)
Quarter: 2007Q3

REPORT INFORMATION
  Report Type: 
  Country: None (occurrence: None)
  Receive Date: 20070710
  Receipt Date: 20070629
  Transmission Date: 20080115
  Serious: Yes (Hospitalization)
  Sender: FDA-Public Use
  Company Number: PHHO2006FR20125

PATIENT
  Age: 69 Year
  Sex: Male

DRUGS (4)
  1. CYCLOSPORINE [Suspect]
     Indication: RENAL TRANSPLANT
     Dosage: 250 MG/DAY
     Route: 048
     Dates: start: 20061019
  2. CYCLOSPORINE [Suspect]
     Dosage: 225 MG
     Route: 048
     Dates: start: 20061207
  3. CELLCEPT [Suspect]
     Indication: RENAL TRANSPLANT
     Dosage: 2 G/DAY
     Route: 048
     Dates: start: 20061016
  4. CORTANCYL [Suspect]
     Indication: RENAL TRANSPLANT
     Dosage: 2.5 MG/DAY
     Route: 048
     Dates: start: 20061110

REACTIONS (5)
  - BLOOD CREATININE INCREASED [None]
  - COLONIC POLYP [None]
  - POLYPECTOMY [None]
  - PSEUDOMONAS INFECTION [None]
  - RECTAL HAEMORRHAGE [None]
